FAERS Safety Report 5936511-7 (Version None)
Quarter: 2008Q4

REPORT INFORMATION
  Report Type: 
  Country: None (occurrence: None)
  Receive Date: 20081030
  Receipt Date: 20081022
  Transmission Date: 20090506
  Serious: Yes (Hospitalization)
  Sender: FDA-Public Use
  Company Number: US-GENENTECH-270410

PATIENT
  Sex: Female

DRUGS (6)
  1. RITUXIMAB [Suspect]
     Indication: B-CELL LYMPHOMA
     Dosage: 698 MG, UNK
     Route: 042
     Dates: start: 20070405
  2. METHOTREXATE [Suspect]
     Indication: B-CELL LYMPHOMA
     Dosage: 186 MG, UNK
     Route: 042
     Dates: start: 20070406
  3. METHOTREXATE [Suspect]
     Dosage: 744 MG, UNK
     Route: 042
  4. CYTARABINE [Suspect]
     Indication: B-CELL LYMPHOMA
     Dosage: 1.86 G, UNK
     Route: 042
  5. LEUCOVORIN CALCIUM [Suspect]
     Indication: B-CELL LYMPHOMA
     Dosage: 50 MG, UNK
     Route: 048
  6. LEUCOVORIN CALCIUM [Suspect]
     Dosage: 15 MG, Q6H
     Route: 048

REACTIONS (1)
  - ASTROCYTOMA [None]
